FAERS Safety Report 23013992 (Version 3)
Quarter: 2023Q4

REPORT INFORMATION
  Report Type: Spontaneous
  Country: JP (occurrence: JP)
  Receive Date: 20231001
  Receipt Date: 20231128
  Transmission Date: 20240109
  Serious: Yes (Hospitalization, Other)
  Sender: FDA-Public Use
  Company Number: JP-KISSEI-TV20230525_P_1

PATIENT
  Age: 75 Year
  Sex: Male
  Weight: 55 kg

DRUGS (9)
  1. TAVNEOS [Suspect]
     Active Substance: AVACOPAN
     Indication: Microscopic polyangiitis
     Dosage: 30 MILLIGRAM, Q12H
     Route: 048
     Dates: start: 20230706, end: 20230830
  2. PREDONINE [Suspect]
     Active Substance: PREDNISOLONE
     Indication: Microscopic polyangiitis
     Dosage: 12.5 MILLIGRAM, QD
     Route: 048
     Dates: start: 202103
  3. PREDONINE [Suspect]
     Active Substance: PREDNISOLONE
     Indication: Liver disorder
     Dosage: 50 MILLIGRAM, QD
     Dates: start: 20230905
  4. ALENDRONATE [Concomitant]
     Active Substance: ALENDRONATE SODIUM
     Indication: Osteoporosis
     Dosage: 35 MILLIGRAM, QWK
     Route: 048
     Dates: start: 202103, end: 2023
  5. FOLIC ACID [Concomitant]
     Active Substance: FOLIC ACID
     Indication: Taste disorder
     Dosage: 5 MILLIGRAM, QD
     Route: 065
     Dates: start: 202106, end: 2023
  6. ALFACALCIDOL [Concomitant]
     Active Substance: ALFACALCIDOL
     Indication: Osteoporosis
     Dosage: PERORAL MEDICINE
     Route: 048
     Dates: start: 202103, end: 2023
  7. ATOVAQUONE [Concomitant]
     Active Substance: ATOVAQUONE
     Indication: Antifungal prophylaxis
     Dosage: LIQUID MEDICINE FOR INTERNAL USE
     Route: 048
     Dates: start: 20230628, end: 2023
  8. ROSUVASTATIN [Concomitant]
     Active Substance: ROSUVASTATIN
     Indication: Dyslipidaemia
     Dosage: 2.5 MILLIGRAM
     Route: 048
     Dates: start: 20230301, end: 2023
  9. VONOPRAZAN FUMARATE [Concomitant]
     Active Substance: VONOPRAZAN FUMARATE
     Indication: Prophylaxis against gastrointestinal ulcer
     Dosage: 20 MILLIGRAM
     Route: 048
     Dates: start: 20230624, end: 2023

REACTIONS (3)
  - Liver disorder [Not Recovered/Not Resolved]
  - Jaundice [Recovering/Resolving]
  - Pneumonia [Recovering/Resolving]

NARRATIVE: CASE EVENT DATE: 20230830
